FAERS Safety Report 4356924-7 (Version None)
Quarter: 2004Q2

REPORT INFORMATION
  Report Type: 
  Country: None (occurrence: None)
  Receive Date: 20040507
  Receipt Date: 20040427
  Transmission Date: 20050107
  Serious: Yes (Other)
  Sender: FDA-Public Use
  Company Number: GB-JNJFOC-20040405930

PATIENT
  Sex: Female

DRUGS (1)
  1. REMICADE [Suspect]
     Indication: RHEUMATOID ARTHRITIS
     Dosage: 200 MG, INTRAVENOUS
     Route: 042
     Dates: end: 20040427

REACTIONS (5)
  - CELLULITIS [None]
  - FLUSHING [None]
  - INFUSION RELATED REACTION [None]
  - PYREXIA [None]
  - VOMITING [None]
